FAERS Safety Report 7073649-8 (Version None)
Quarter: 2010Q4

REPORT INFORMATION
  Report Type: 
  Country: None (occurrence: None)
  Receive Date: 20101029
  Receipt Date: 20100726
  Transmission Date: 20110411
  Serious: No
  Sender: FDA-Public Use
  Company Number: A0872329A

PATIENT
  Age: 43 Year
  Sex: Male

DRUGS (3)
  1. ADVAIR DISKUS 100/50 [Suspect]
     Dosage: 1PUFF TWICE PER DAY
     Route: 055
     Dates: start: 20100724
  2. AVELOX [Concomitant]
  3. PROAIR HFA [Concomitant]

REACTIONS (1)
  - DRUG INEFFECTIVE [None]
